FAERS Safety Report 14790318 (Version 1)
Quarter: 2018Q2

REPORT INFORMATION
  Report Type: Spontaneous
  Country: SK (occurrence: SK)
  Receive Date: 20180423
  Receipt Date: 20180423
  Transmission Date: 20180711
  Serious: Yes (Life-Threatening)
  Sender: FDA-Public Use
  Company Number: SK-FRESENIUS KABI-FK201804711

PATIENT
  Age: 65 Year
  Sex: Female

DRUGS (2)
  1. CYTARABINE (MANUFACTURER UNKNOWN) [Suspect]
     Active Substance: CYTARABINE
     Indication: ACUTE MYELOID LEUKAEMIA
     Route: 065
  2. DAUNORUBICINE [Suspect]
     Active Substance: DAUNORUBICIN
     Indication: ACUTE MYELOID LEUKAEMIA
     Route: 065

REACTIONS (6)
  - Enterocolitis [Unknown]
  - Cholecystitis [Unknown]
  - Bacteraemia [Unknown]
  - Liver disorder [Unknown]
  - Jaundice [Unknown]
  - Sepsis [Unknown]
